FAERS Safety Report 8942365 (Version 1)
Quarter: 2012Q4

REPORT INFORMATION
  Report Type: Spontaneous
  Country: US (occurrence: None)
  Receive Date: 20121121
  Receipt Date: 20121121
  Transmission Date: 20130627
  Serious: Yes (Hospitalization)
  Sender: FDA-Public Use
  Company Number: SP06207

PATIENT
  Age: 66 Year
  Sex: Female

DRUGS (5)
  1. MOVIPREP (SOLUTION) [Suspect]
     Indication: BOWEL PREPARATION
     Route: 048
     Dates: start: 20121114
  2. ASPIRIN [Concomitant]
  3. METFORMIN [Concomitant]
  4. ZOCOR [Concomitant]
  5. BLOOD PRESSURE MEDICINE [Concomitant]

REACTIONS (2)
  - Cerebrovascular accident [None]
  - Convulsion [None]
